FAERS Safety Report 15853480 (Version 3)
Quarter: 2019Q4

REPORT INFORMATION
  Report Type: Spontaneous
  Country: US (occurrence: US)
  Receive Date: 20190122
  Receipt Date: 20191009
  Transmission Date: 20200122
  Serious: No
  Sender: FDA-Public Use
  Company Number: US-TEVA-2018-US-897279

PATIENT
  Sex: Female
  Weight: 59.02 kg

DRUGS (9)
  1. PROVIGIL [Suspect]
     Active Substance: MODAFINIL
     Indication: SOMNOLENCE
     Dosage: 100 MILLIGRAM DAILY;
     Dates: start: 2013
  2. PROVIGIL [Suspect]
     Active Substance: MODAFINIL
     Indication: OBSESSIVE-COMPULSIVE DISORDER
  3. BUSPAR [Concomitant]
     Active Substance: BUSPIRONE HYDROCHLORIDE
     Indication: ANXIETY
     Dosage: 30 MILLIGRAM DAILY; AM
     Dates: start: 20180725
  4. LUVOX [Concomitant]
     Active Substance: FLUVOXAMINE MALEATE
     Indication: OBSESSIVE-COMPULSIVE DISORDER
     Dosage: 200 MILLIGRAM DAILY; 100 MG IN AM- 200 MG IN PM
     Dates: start: 2010
  5. LUVOX [Concomitant]
     Active Substance: FLUVOXAMINE MALEATE
     Indication: ANXIETY
     Dosage: PM
     Dates: start: 2010
  6. LUVOX [Concomitant]
     Active Substance: FLUVOXAMINE MALEATE
     Dosage: 100 DOSAGE FORMS DAILY;
  7. ZOFRAN [Concomitant]
     Active Substance: ONDANSETRON HYDROCHLORIDE
     Indication: NAUSEA
     Dosage: PER 6 HRS(AS NEEDED)
     Dates: start: 20180611
  8. BUSPAR [Concomitant]
     Active Substance: BUSPIRONE HYDROCHLORIDE
     Indication: OBSESSIVE-COMPULSIVE DISORDER
  9. ZOFRAN [Concomitant]
     Active Substance: ONDANSETRON HYDROCHLORIDE
     Indication: VOMITING

REACTIONS (1)
  - Maternal exposure during pregnancy [Unknown]
